FAERS Safety Report 5764038-4 (Version None)
Quarter: 2008Q2

REPORT INFORMATION
  Report Type: 
  Country: None (occurrence: None)
  Receive Date: 20080602
  Receipt Date: 20080207
  Transmission Date: 20081010
  Serious: No
  Sender: FDA-Public Use
  Company Number: PHEH2007US14929

PATIENT
  Age: 74 Year
  Sex: Female
  Weight: 51.7 kg

DRUGS (4)
  1. TEKTURNA [Suspect]
     Indication: HYPERTENSION
     Dosage: QAM, ORAL ; QPM
     Route: 048
     Dates: start: 20071112, end: 20071115
  2. LANTUS [Concomitant]
  3. HUMALOG [Concomitant]
  4. LOPRESSOR [Concomitant]

REACTIONS (6)
  - DIZZINESS [None]
  - FACIAL PAIN [None]
  - GAIT DISTURBANCE [None]
  - HEADACHE [None]
  - PAIN IN JAW [None]
  - TOOTHACHE [None]
